FAERS Safety Report 5346900-X (Version None)
Quarter: 2007Q2

REPORT INFORMATION
  Report Type: 
  Country: None (occurrence: None)
  Receive Date: 20070501
  Receipt Date: 20060901
  Transmission Date: 20071010
  Serious: Yes (Other)
  Sender: FDA-Public Use
  Company Number: 008529

PATIENT
  Age: 56 Year
  Sex: Female

DRUGS (6)
  1. CENESTIN [Suspect]
     Dosage: ORAL
     Route: 048
     Dates: start: 19950101, end: 20030101
  2. PREMARIN [Suspect]
     Dosage: ORAL
     Route: 048
  3. PREMPRO [Suspect]
     Dosage: ORAL
     Route: 048
     Dates: start: 19950101, end: 20030101
  4. ESTRATEST [Suspect]
     Dosage: ORAL
     Route: 048
     Dates: start: 19950101, end: 20030101
  5. ESTRACE [Suspect]
     Dosage: ORAL
     Route: 048
     Dates: start: 19950101, end: 20030101
  6. ESTRACE [Suspect]
     Dosage: VAGINAL
     Route: 067
     Dates: start: 19950101, end: 20030101

REACTIONS (1)
  - OVARIAN CANCER [None]
